FAERS Safety Report 8391595-4 (Version None)
Quarter: 2012Q2

REPORT INFORMATION
  Report Type: 
  Country: None (occurrence: None)
  Receive Date: 20120529
  Receipt Date: 20120525
  Transmission Date: 20120825
  Serious: Yes (Other)
  Sender: FDA-Public Use
  Company Number: PHEH2012US010824

PATIENT
  Sex: Male

DRUGS (5)
  1. BYSTOLIC [Concomitant]
     Dosage: UNK
  2. VALTURNA [Suspect]
     Dosage: UNK
  3. CLONIDINE [Concomitant]
     Dosage: UNK
  4. NORVASC [Concomitant]
     Dosage: UNK
  5. AMLODIPINE BESYLATE [Concomitant]
     Dosage: UNK

REACTIONS (2)
  - CONVULSION [None]
  - KIDNEY INFECTION [None]
